FAERS Safety Report 26123113 (Version 1)
Quarter: 2025Q4

REPORT INFORMATION
  Report Type: Spontaneous
  Country: US (occurrence: US)
  Receive Date: 20251204
  Receipt Date: 20251204
  Transmission Date: 20260118
  Serious: Yes (Other)
  Sender: Harrow Health
  Company Number: US-HARROW-HAR-2025-US-01678

PATIENT
  Age: 73 Year

DRUGS (5)
  1. VIGAMOX [Suspect]
     Active Substance: MOXIFLOXACIN HYDROCHLORIDE
     Dosage: 1 DROP X 3 Q5MINS
     Route: 047
     Dates: start: 20251110
  2. TETRACAINE [Concomitant]
     Active Substance: TETRACAINE
  3. cyclogel [Concomitant]
  4. PHENYLEPHRINE [Concomitant]
     Active Substance: PHENYLEPHRINE
  5. TROPICAMIDE [Concomitant]
     Active Substance: TROPICAMIDE

REACTIONS (1)
  - Endophthalmitis [Unknown]
